FAERS Safety Report 23294549 (Version 1)
Quarter: 2023Q4

REPORT INFORMATION
  Report Type: Spontaneous
  Country: JP (occurrence: JP)
  Receive Date: 20231213
  Receipt Date: 20231213
  Transmission Date: 20240110
  Serious: Yes (Hospitalization)
  Sender: FDA-Public Use
  Company Number: JP-Eisai-202310906_LEN-HCC_P_1

PATIENT
  Sex: Male

DRUGS (3)
  1. LENVIMA [Suspect]
     Active Substance: LENVATINIB
     Indication: Hepatocellular carcinoma
     Route: 048
     Dates: start: 20231029
  2. LENVIMA [Suspect]
     Active Substance: LENVATINIB
     Dosage: ADMINISTARTION OF 5-DOSE AND 2-INTERRUPTION
     Route: 048
     Dates: start: 20231106
  3. LENVIMA [Suspect]
     Active Substance: LENVATINIB
     Dosage: ADMINISTRATION OF 5-DOSE AND 2-INTERRUPTION
     Route: 048
     Dates: start: 20231204

REACTIONS (2)
  - Malaise [Recovered/Resolved]
  - Arthralgia [Recovered/Resolved]

NARRATIVE: CASE EVENT DATE: 20231106
